FAERS Safety Report 6483930-9 (Version None)
Quarter: 2009Q4

REPORT INFORMATION
  Report Type: 
  Country: None (occurrence: None)
  Receive Date: 20091209
  Receipt Date: 20091203
  Transmission Date: 20100525
  Serious: Yes (Life-Threatening)
  Sender: FDA-Public Use
  Company Number: BE-MERCK-0911BEL00005

PATIENT
  Age: 61 Year
  Sex: Male
  Weight: 105 kg

DRUGS (13)
  1. JANUVIA [Suspect]
     Indication: TYPE 2 DIABETES MELLITUS
     Route: 048
     Dates: start: 20080603, end: 20080603
  2. LEVOTHYROXINE SODIUM [Concomitant]
     Indication: HYPOTHYROIDISM
     Dosage: TAKEN SINCE SOME YEARS
     Route: 048
  3. METFORMIN HYDROCHLORIDE [Concomitant]
     Indication: TYPE 2 DIABETES MELLITUS
     Dosage: TAKEN SINCE SOME YEARS
     Route: 048
  4. REPAGLINIDE [Concomitant]
     Indication: TYPE 2 DIABETES MELLITUS
     Dosage: TAKEN SINCE SOME YEARS
     Route: 048
  5. FUROSEMIDE [Concomitant]
     Indication: ATRIAL FIBRILLATION
     Dosage: TAKEN SINCE SOME YEARS
     Route: 048
  6. FUROSEMIDE [Concomitant]
     Indication: DYSPNOEA
     Dosage: TAKEN SINCE SOME YEARS
     Route: 048
  7. METOPROLOL TARTRATE [Concomitant]
     Indication: ATRIAL FIBRILLATION
     Dosage: TAKEN SINCE SOME YEARS
     Route: 048
  8. ALPRAZOLAM [Concomitant]
     Dosage: TAKEN SINCE SOME YEARS
     Route: 048
  9. AMIODARONE HYDROCHLORIDE [Concomitant]
     Indication: ATRIAL FIBRILLATION
     Dosage: TAKEN SINCE SOME YEARS
     Route: 048
  10. METILDIGOXIN [Concomitant]
     Indication: ATRIAL FIBRILLATION
     Dosage: TAKEN SINCE SOME YEARS
     Route: 048
  11. ACENOCOUMAROL [Concomitant]
     Indication: ATRIAL FIBRILLATION
     Dosage: ACCORDING PTT; TAKEN SINCE SOME YEARS
     Route: 048
  12. FLUTICASONE PROPIONATE AND SALMETEROL XINAFOATE [Concomitant]
     Indication: CHRONIC OBSTRUCTIVE PULMONARY DISEASE
     Dosage: TAKEN SINCE SOME YEARS
     Route: 055
  13. TIOTROPIUM BROMIDE [Concomitant]
     Indication: CHRONIC OBSTRUCTIVE PULMONARY DISEASE
     Dosage: TAKEN SINCE SOME YEARS
     Route: 055

REACTIONS (2)
  - DEPRESSED LEVEL OF CONSCIOUSNESS [None]
  - HYPOGLYCAEMIA [None]
